FAERS Safety Report 9587725 (Version 1)
Quarter: 2013Q4

REPORT INFORMATION
  Report Type: Spontaneous
  Country: US (occurrence: US)
  Receive Date: 20131003
  Receipt Date: 20131003
  Transmission Date: 20140711
  Serious: No
  Sender: FDA-Public Use
  Company Number: US-COVIDIEN/TYCO HEALTHCARE/MALLINCKRODT-T201301385

PATIENT
  Age: 54 Year
  Sex: Male

DRUGS (4)
  1. EXALGO EXTENDED RELEASE [Suspect]
     Indication: RHEUMATOID ARTHRITIS
     Dosage: 16 MG, EVERY 8 HOURS, UP TO 3 PER DAY
     Dates: start: 20130110, end: 20130111
  2. AMBIEN [Concomitant]
     Indication: INSOMNIA
     Dosage: 10 MG, UNK
  3. KLONOPIN [Concomitant]
     Indication: NERVOUSNESS
     Dosage: 1 MG
  4. MORPHINE EXTENDED RELEASE [Concomitant]
     Dosage: 75 MG, BID

REACTIONS (3)
  - Migraine [Unknown]
  - Muscle tightness [Unknown]
  - Neck pain [Unknown]
